FAERS Safety Report 4372670-8 (Version None)
Quarter: 2004Q2

REPORT INFORMATION
  Report Type: 
  Country: None (occurrence: None)
  Receive Date: 20040608
  Receipt Date: 20040527
  Transmission Date: 20050107
  Serious: Yes (Hospitalization)
  Sender: FDA-Public Use
  Company Number: GB-JNJFOC-20040506550

PATIENT
  Sex: Male

DRUGS (10)
  1. REMICADE [Suspect]
     Indication: RHEUMATOID ARTHRITIS
     Route: 042
     Dates: start: 20030923
  2. METHOTREXATE [Concomitant]
  3. PREDNISOLONE [Concomitant]
  4. LANSOPRAZOLE [Concomitant]
  5. BENDROFLUAZIDE [Concomitant]
  6. ISOSORBIDE MONONITRATE [Concomitant]
  7. ASPIRIN [Concomitant]
  8. ATORVASTATIN CALCIUM [Concomitant]
  9. NAPROXEN [Concomitant]
  10. AMITRIPTYLINE HCL [Concomitant]

REACTIONS (2)
  - CHEST PAIN [None]
  - INTERVERTEBRAL DISC PROTRUSION [None]
